FAERS Safety Report 8563436-3 (Version None)
Quarter: 2012Q3

REPORT INFORMATION
  Report Type: 
  Country: None (occurrence: None)
  Receive Date: 20120802
  Receipt Date: 20111105
  Transmission Date: 20120928
  Serious: Yes (Hospitalization, Other)
  Sender: FDA-Public Use
  Company Number: US-BAYER-200942458NA

PATIENT
  Age: 45 Year
  Sex: Female
  Weight: 143.31 kg

DRUGS (9)
  1. KLOR-CON [Concomitant]
     Dosage: UNK
  2. LASIX [Concomitant]
     Dosage: UNK
  3. LEVOTHYROXINE SODIUM [Concomitant]
     Dosage: UNK
  4. VITAMIN TAB [Concomitant]
     Dosage: UNK
  5. LOVENOX [Concomitant]
     Dosage: UNK
     Dates: start: 20090901, end: 20090901
  6. ROPINIROLE [Concomitant]
     Indication: RESTLESS LEGS SYNDROME
     Dosage: UNK
     Dates: start: 20070923
  7. REQUIP [Concomitant]
     Dosage: UNK
  8. YAZ [Suspect]
     Indication: VAGINAL HAEMORRHAGE
     Route: 048
     Dates: start: 20070209, end: 20070918
  9. LOVENOX [Concomitant]
     Dosage: UNK
     Dates: start: 20070901, end: 20070901

REACTIONS (9)
  - HYPOAESTHESIA [None]
  - DYSPNOEA [None]
  - PULMONARY EMBOLISM [None]
  - DEEP VEIN THROMBOSIS [None]
  - ARTHRALGIA [None]
  - JOINT SWELLING [None]
  - PAIN IN EXTREMITY [None]
  - CHEST DISCOMFORT [None]
  - PULMONARY INFARCTION [None]
